FAERS Safety Report 6392369-6 (Version None)
Quarter: 2009Q4

REPORT INFORMATION
  Report Type: 
  Country: None (occurrence: None)
  Receive Date: 20091007
  Receipt Date: 20090930
  Transmission Date: 20100525
  Serious: Yes (Death, Hospitalization)
  Sender: FDA-Public Use
  Company Number: PHHO2009GB12141

PATIENT
  Sex: Male
  Weight: 49.4 kg

DRUGS (9)
  1. RAD 666 RAD+TAB [Suspect]
     Indication: METASTATIC SQUAMOUS CELL CARCINOMA
     Dosage: 10 MG, UNK
     Route: 048
     Dates: start: 20090922
  2. DOCETAXEL COMP-DOC+ [Suspect]
     Indication: METASTATIC SQUAMOUS CELL CARCINOMA
     Dosage: 120 MG, UNK
     Dates: start: 20090922
  3. DEXAMETHASONE 0.5MG TAB [Concomitant]
  4. CIPROFLOXACIN HYDROCHLORIDE [Concomitant]
  5. METOCLOPRAMIDE [Concomitant]
  6. MORPHINE SULFATE [Concomitant]
  7. FENTANYL-100 [Concomitant]
  8. ACETAMINOPHEN [Concomitant]
  9. TRAMADOL [Concomitant]

REACTIONS (5)
  - BODY TEMPERATURE INCREASED [None]
  - C-REACTIVE PROTEIN INCREASED [None]
  - MALAISE [None]
  - NEUTROPENIA [None]
  - SUDDEN DEATH [None]
